FAERS Safety Report 11771444 (Version 1)
Quarter: 2015Q4

REPORT INFORMATION
  Report Type: Spontaneous
  Country: US (occurrence: None)
  Receive Date: 20151123
  Receipt Date: 20151123
  Transmission Date: 20160304
  Serious: Yes (Hospitalization)
  Sender: FDA-Public Use
  Company Number: None

PATIENT
  Age: 48 Year
  Sex: Male
  Weight: 95.26 kg

DRUGS (8)
  1. COMPLERA [Concomitant]
     Active Substance: EMTRICITABINE\RILPIVIRINE HYDROCHLORIDE\TENOFOVIR DISOPROXIL FUMARATE
  2. TRIUMEQ [Suspect]
     Active Substance: ABACAVIR SULFATE\DOLUTEGRAVIR SODIUM\LAMIVUDINE
     Indication: HIV INFECTION
     Dosage: 1 PILL ONCE DAILY TAKEN BY MOUTH
     Route: 048
     Dates: start: 20150601, end: 20151117
  3. LISINOPRIL. [Concomitant]
     Active Substance: LISINOPRIL
  4. SYNTHROID [Concomitant]
     Active Substance: LEVOTHYROXINE SODIUM
  5. PRAVASTATIN [Concomitant]
     Active Substance: PRAVASTATIN\PRAVASTATIN SODIUM
  6. KETOCONAZOLE. [Concomitant]
     Active Substance: KETOCONAZOLE
  7. DAILY VITAMIN [Concomitant]
     Active Substance: VITAMINS
  8. ZYPREXA [Concomitant]
     Active Substance: OLANZAPINE

REACTIONS (8)
  - Tremor [None]
  - Hyperhidrosis [None]
  - Arthralgia [None]
  - Nervousness [None]
  - Bipolar disorder [None]
  - Panic attack [None]
  - Anxiety [None]
  - Hypothyroidism [None]

NARRATIVE: CASE EVENT DATE: 20151117
